FAERS Safety Report 6773189-7 (Version None)
Quarter: 2010Q2

REPORT INFORMATION
  Report Type: 
  Country: None (occurrence: None)
  Receive Date: 20100520
  Receipt Date: 20090310
  Transmission Date: 20101027
  Serious: Yes (Other)
  Sender: FDA-Public Use
  Company Number: 2009181327

PATIENT
  Age: 66 Year
  Sex: Female
  Weight: 82 kg

DRUGS (8)
  1. PROVERA [Suspect]
     Indication: HOT FLUSH
     Dosage: ORAL
     Route: 048
     Dates: start: 19890101, end: 19960101
  2. PREMARIN [Suspect]
     Indication: CARDIOVASCULAR EVENT PROPHYLAXIS
     Dosage: 0.625 MG
     Dates: start: 19890101, end: 19960101
  3. PREMARIN [Suspect]
     Indication: HOT FLUSH
     Dosage: 0.625 MG
     Dates: start: 19890101, end: 19960101
  4. PREMARIN [Suspect]
     Indication: MENOPAUSAL SYMPTOMS
     Dosage: 0.625 MG
     Dates: start: 19890101, end: 19960101
  5. PREMPRO [Suspect]
     Indication: CARDIOVASCULAR EVENT PROPHYLAXIS
     Dates: start: 19960101, end: 20020101
  6. PREMPRO [Suspect]
     Indication: HOT FLUSH
     Dates: start: 19960101, end: 20020101
  7. PREMPRO [Suspect]
     Indication: MENOPAUSAL SYMPTOMS
     Dates: start: 19960101, end: 20020101
  8. PREMPRO [Suspect]
     Indication: OSTEOPOROSIS PROPHYLAXIS
     Dates: start: 19960101, end: 20020101

REACTIONS (2)
  - BREAST CANCER [None]
  - NEUROPATHY PERIPHERAL [None]
